FAERS Safety Report 9431788 (Version 2)
Quarter: 2013Q3

REPORT INFORMATION
  Report Type: Spontaneous
  Country: US (occurrence: None)
  Receive Date: 20130726
  Receipt Date: 20130730
  Transmission Date: 20140515
  Serious: Yes (Other)
  Sender: FDA-Public Use
  Company Number: ACO_35857_2013

PATIENT
  Age: 63 Year
  Sex: Female
  Weight: 68 kg

DRUGS (13)
  1. AMPYRA [Suspect]
     Indication: PRODUCT USED FOR UNKNOWN INDICATION
     Route: 048
     Dates: start: 20111215, end: 201209
  2. INTERFERON BETA-1B [Suspect]
     Indication: PRODUCT USED FOR UNKNOWN INDICATION
  3. GILENYA [Suspect]
     Indication: PRODUCT USED FOR UNKNOWN INDICATION
     Route: 048
     Dates: start: 20120717
  4. PRILOSEC [Concomitant]
  5. ALEVE (NAPROXEN SODIUM) [Concomitant]
  6. BOTOX (BOTULINUM TOXIN TYPE A) [Concomitant]
  7. VITAMIN B-12 (CYANOCOBALAMIN) [Concomitant]
  8. CO-Q-10 (UBIDECARENONE) [Concomitant]
  9. OMEPRAZOLE [Concomitant]
  10. VITAMIN D3 (COLECALCIFEROL) [Concomitant]
  11. CALCIUM [Concomitant]
  12. RITALIN (METHYPHENIDATE HYDROCHLORIDE) [Concomitant]
  13. BACLOFEN [Concomitant]

REACTIONS (12)
  - Drug hypersensitivity [None]
  - Blood pressure increased [None]
  - Musculoskeletal stiffness [None]
  - Fatigue [None]
  - Muscle tightness [None]
  - Stress [None]
  - Hoffmann^s sign [None]
  - Gait spastic [None]
  - Non-cardiac chest pain [None]
  - Anxiety [None]
  - Dizziness [None]
  - Balance disorder [None]
